FAERS Safety Report 15841185 (Version 1)
Quarter: 2019Q1

REPORT INFORMATION
  Report Type: Report from Study
  Country: FR (occurrence: FR)
  Receive Date: 20190118
  Receipt Date: 20190118
  Transmission Date: 20190417
  Serious: Yes (Hospitalization, Other)
  Sender: FDA-Public Use
  Company Number: FR-ADDMEDICA-201900002

PATIENT
  Age: 41 Year
  Sex: Female
  Weight: 56 kg

DRUGS (8)
  1. SIKLOS [Suspect]
     Active Substance: HYDROXYUREA
     Indication: SICKLE CELL ANAEMIA WITH CRISIS
     Route: 048
     Dates: start: 20140613, end: 20141218
  2. FOLIC ACID. [Concomitant]
     Active Substance: FOLIC ACID
     Indication: PRODUCT USED FOR UNKNOWN INDICATION
     Route: 065
  3. SIKLOS [Suspect]
     Active Substance: HYDROXYUREA
     Indication: SICKLE CELL ANAEMIA WITH CRISIS
     Route: 048
     Dates: start: 20141219, end: 20171005
  4. SIKLOS [Suspect]
     Active Substance: HYDROXYUREA
     Indication: SICKLE CELL ANAEMIA WITH CRISIS
     Route: 048
     Dates: start: 20171006
  5. UVEDOSE [Concomitant]
     Active Substance: CHOLECALCIFEROL
     Indication: PRODUCT USED FOR UNKNOWN INDICATION
     Route: 065
     Dates: start: 2014
  6. HYDROCORTISONE. [Concomitant]
     Active Substance: HYDROCORTISONE
     Indication: PRODUCT USED FOR UNKNOWN INDICATION
     Route: 065
  7. BIPROFENID [Concomitant]
     Active Substance: KETOPROFEN
     Indication: PAIN
     Route: 065
     Dates: start: 20171006
  8. SIKLOS [Suspect]
     Active Substance: HYDROXYUREA
     Indication: SICKLE CELL ANAEMIA WITH CRISIS
     Route: 048
     Dates: end: 20180706

REACTIONS (2)
  - Pancytopenia [Recovered/Resolved]
  - Asthenia [Recovered/Resolved]

NARRATIVE: CASE EVENT DATE: 20180704
